FAERS Safety Report 5423045-1 (Version None)
Quarter: 2007Q3

REPORT INFORMATION
  Report Type: 
  Country: None (occurrence: None)
  Receive Date: 20070822
  Receipt Date: 20070815
  Transmission Date: 20080115
  Serious: Yes (Hospitalization)
  Sender: FDA-Public Use
  Company Number: US-PFIZER INC-2007067975

PATIENT
  Sex: Female
  Weight: 68 kg

DRUGS (1)
  1. CELEBREX [Suspect]
     Indication: PAIN IN EXTREMITY

REACTIONS (6)
  - AMNESIA [None]
  - HEADACHE [None]
  - INSOMNIA [None]
  - INTRACRANIAL ANEURYSM [None]
  - MENTAL DISORDER [None]
  - RASH [None]
